FAERS Safety Report 24839012 (Version 1)
Quarter: 2025Q1

REPORT INFORMATION
  Report Type: Spontaneous
  Country: DE (occurrence: DE)
  Receive Date: 20250114
  Receipt Date: 20250114
  Transmission Date: 20250408
  Serious: Yes (Hospitalization, Other)
  Sender: IPCA
  Company Number: DE-IPCA LABORATORIES LIMITED-IPC-2025-DE-000060

PATIENT

DRUGS (6)
  1. LAMOTRIGINE [Suspect]
     Active Substance: LAMOTRIGINE
     Indication: Bipolar disorder
     Route: 065
  2. DULOXETINE [Suspect]
     Active Substance: DULOXETINE
     Indication: Depression
     Route: 065
  3. PROMETHAZINE [Suspect]
     Active Substance: PROMETHAZINE HYDROCHLORIDE
     Indication: Product used for unknown indication
     Route: 065
  4. METAMIZOLE [Suspect]
     Active Substance: METAMIZOLE
     Indication: Product used for unknown indication
     Route: 065
  5. IBUPROFEN [Concomitant]
     Active Substance: IBUPROFEN
     Indication: Product used for unknown indication
     Route: 065
  6. AMPHOMORONAL [Concomitant]
     Indication: Product used for unknown indication
     Route: 065

REACTIONS (15)
  - Drug reaction with eosinophilia and systemic symptoms [Recovering/Resolving]
  - Drug-induced liver injury [Recovering/Resolving]
  - Ascites [Recovering/Resolving]
  - Cholestasis [Recovering/Resolving]
  - Hepatic failure [Recovering/Resolving]
  - Rash [Recovered/Resolved]
  - Transaminases increased [Recovered/Resolved]
  - Pyrexia [Recovered/Resolved]
  - Pain [Recovered/Resolved]
  - Hepatosplenomegaly [Recovering/Resolving]
  - Lymphadenopathy [Recovering/Resolving]
  - Pleural effusion [Recovering/Resolving]
  - Coagulopathy [Recovering/Resolving]
  - Eosinophilia [Recovering/Resolving]
  - Lymphadenopathy [Recovering/Resolving]
